FAERS Safety Report 8033019-2 (Version None)
Quarter: 2011Q4

REPORT INFORMATION
  Report Type: 
  Country: None (occurrence: None)
  Receive Date: 20111223
  Receipt Date: 20111214
  Transmission Date: 20120403
  Serious: Yes (Death, Life-Threatening, Hospitalization, Other)
  Sender: FDA-Public Use
  Company Number: 2011MA017604

PATIENT
  Sex: Male

DRUGS (18)
  1. CATAPRES [Concomitant]
  2. ZAROXOLYN [Concomitant]
  3. DIGOXIN [Suspect]
     Dosage: .125 MG; QD; PO
     Route: 048
     Dates: start: 20030405, end: 20070313
  4. HUMULIN R [Concomitant]
  5. ISOSORBIDE DINITRATE [Concomitant]
  6. NOVOLIN 70/30 [Concomitant]
  7. ZOCOR [Concomitant]
  8. FOLIC ACID [Concomitant]
  9. PLAVIX [Concomitant]
  10. THYROXIN [Concomitant]
  11. METOPROLOL TARTRATE [Concomitant]
  12. PROCRIT [Concomitant]
  13. AMLODIPINE [Concomitant]
  14. LEVAQUIN [Concomitant]
  15. NORVASC [Concomitant]
  16. NOVOLIN N-NPH [Concomitant]
  17. IMDUR [Concomitant]
  18. LASIX [Concomitant]

REACTIONS (40)
  - CHEST PAIN [None]
  - HAEMODIALYSIS [None]
  - LEUKOCYTOSIS [None]
  - PLEURAL EFFUSION [None]
  - PNEUMONIA [None]
  - HYPERHIDROSIS [None]
  - HYPERLIPIDAEMIA [None]
  - WHITE BLOOD CELL COUNT INCREASED [None]
  - CARDIAC FAILURE CONGESTIVE [None]
  - DIABETIC RETINOPATHY [None]
  - ATELECTASIS [None]
  - LUNG INFILTRATION [None]
  - THROMBOCYTOPENIA [None]
  - CARDIO-RESPIRATORY ARREST [None]
  - CAROTID ARTERIOSCLEROSIS [None]
  - BLOOD ALKALINE PHOSPHATASE INCREASED [None]
  - CONDUCTION DISORDER [None]
  - RENAL FAILURE CHRONIC [None]
  - CHILLS [None]
  - TREMOR [None]
  - HYPERPARATHYROIDISM [None]
  - FLUID OVERLOAD [None]
  - MYOCARDIAL INFARCTION [None]
  - MITRAL VALVE INCOMPETENCE [None]
  - BENIGN PROSTATIC HYPERPLASIA [None]
  - CAROTID ARTERY STENOSIS [None]
  - ATRIOVENTRICULAR BLOCK FIRST DEGREE [None]
  - MYOCARDIAL ISCHAEMIA [None]
  - GENITAL ERYTHEMA [None]
  - HYPERTENSION [None]
  - PULMONARY OEDEMA [None]
  - ANXIETY [None]
  - TORSADE DE POINTES [None]
  - BUNDLE BRANCH BLOCK LEFT [None]
  - BLOOD URIC ACID INCREASED [None]
  - SUPRAVENTRICULAR EXTRASYSTOLES [None]
  - ATRIAL FIBRILLATION [None]
  - CONDITION AGGRAVATED [None]
  - RESPIRATORY FAILURE [None]
  - BLOOD URINE PRESENT [None]
